FAERS Safety Report 10063623 (Version 3)
Quarter: 2014Q2

REPORT INFORMATION
  Report Type: Spontaneous
  Country: US (occurrence: US)
  Receive Date: 20140407
  Receipt Date: 20140604
  Transmission Date: 20141212
  Serious: Yes (Other)
  Sender: FDA-Public Use
  Company Number: US-KOWA-2014S1000372

PATIENT
  Age: 71 Year
  Sex: Female

DRUGS (5)
  1. LIVALO [Suspect]
     Indication: BLOOD CHOLESTEROL
     Route: 048
     Dates: start: 2012, end: 201309
  2. LIVALO [Suspect]
     Indication: BLOOD CHOLESTEROL
     Route: 048
     Dates: start: 201309, end: 20131005
  3. DILTIAZEM [Concomitant]
     Indication: BLOOD PRESSURE
     Route: 048
     Dates: start: 2011
  4. FLECAINIDE [Concomitant]
     Indication: ATRIAL FIBRILLATION
     Route: 048
     Dates: start: 2011
  5. ASPIRIN [Concomitant]
     Route: 048
     Dates: start: 2012

REACTIONS (7)
  - Weight decreased [Recovered/Resolved]
  - Decreased appetite [Recovered/Resolved]
  - Asthenia [Recovered/Resolved]
  - Abdominal pain [Recovered/Resolved]
  - Chromaturia [Recovered/Resolved]
  - Blood alkaline phosphatase increased [Recovered/Resolved]
  - Wrong technique in drug usage process [Recovered/Resolved]
